FAERS Safety Report 6952775-5 (Version None)
Quarter: 2010Q3

REPORT INFORMATION
  Report Type: 
  Country: None (occurrence: None)
  Receive Date: 20100829
  Receipt Date: 20100514
  Transmission Date: 20110219
  Serious: No
  Sender: FDA-Public Use
  Company Number: US-ABBOTT-10P-163-0645659-00

PATIENT
  Sex: Male

DRUGS (6)
  1. NIASPAN [Suspect]
     Indication: BLOOD CHOLESTEROL INCREASED
     Dates: start: 20100301, end: 20100401
  2. NIASPAN [Suspect]
     Dates: start: 20100423
  3. ZOCOR [Concomitant]
     Indication: BLOOD CHOLESTEROL INCREASED
     Dosage: DAILY
     Dates: start: 20090201
  4. ALTACE [Concomitant]
     Indication: HYPERTENSION
     Dosage: DAILY
     Dates: start: 20090201
  5. UNKNOWN MEDICATION [Concomitant]
     Indication: CARDIOVASCULAR DISORDER
     Dosage: UNKNOWN
     Dates: start: 20090201
  6. ASPIRIN [Concomitant]
     Indication: PROPHYLAXIS
     Dates: start: 20100301

REACTIONS (4)
  - CHEST DISCOMFORT [None]
  - DYSPNOEA [None]
  - MICTURITION URGENCY [None]
  - PRURITUS [None]
